FAERS Safety Report 16883987 (Version 3)
Quarter: 2019Q4

REPORT INFORMATION
  Report Type: Report from Study
  Country: None (occurrence: ES)
  Receive Date: 20191004
  Receipt Date: 20191115
  Transmission Date: 20200122
  Serious: Yes (Death, Other)
  Sender: FDA-Public Use
  Company Number: ES-ABBVIE-19K-144-2946182-00

PATIENT
  Age: 78 Year
  Sex: Female
  Weight: 60 kg

DRUGS (1)
  1. DUODOPA [Suspect]
     Active Substance: CARBIDOPA\LEVODOPA
     Indication: PARKINSON^S DISEASE
     Dosage: 20 MG/ML 5 MG/ML
     Route: 050
     Dates: start: 20171221

REACTIONS (15)
  - Decreased appetite [Not Recovered/Not Resolved]
  - Dysphagia [Not Recovered/Not Resolved]
  - Asthenia [Not Recovered/Not Resolved]
  - Nausea [Not Recovered/Not Resolved]
  - Drug ineffective [Unknown]
  - Dyskinesia [Not Recovered/Not Resolved]
  - General physical health deterioration [Unknown]
  - Hypophagia [Unknown]
  - Musculoskeletal stiffness [Not Recovered/Not Resolved]
  - Parkinson^s disease [Unknown]
  - Mobility decreased [Unknown]
  - General physical health deterioration [Fatal]
  - Gait inability [Not Recovered/Not Resolved]
  - Choking sensation [Recovered/Resolved]
  - Dyspnoea [Not Recovered/Not Resolved]

NARRATIVE: CASE EVENT DATE: 2019
